FAERS Safety Report 7040902-3 (Version None)
Quarter: 2010Q4

REPORT INFORMATION
  Report Type: 
  Country: None (occurrence: None)
  Receive Date: 20101013
  Receipt Date: 20101007
  Transmission Date: 20110411
  Serious: Yes (Death, Life-Threatening, Hospitalization)
  Sender: FDA-Public Use
  Company Number: US-JNJFOC-20090901583

PATIENT
  Sex: Female
  Weight: 42.18 kg

DRUGS (2)
  1. SANDOZ FENTANYL TRANSDERMAL SYSTEM [Suspect]
     Indication: BACK PAIN
     Dosage: NDC#0781-7114-55
     Route: 062
     Dates: start: 20090821
  2. FENTANYL CITRATE [Suspect]
     Indication: BACK PAIN
     Route: 062

REACTIONS (7)
  - ABASIA [None]
  - CARDIAC ARREST [None]
  - DEVICE LEAKAGE [None]
  - PRODUCT QUALITY ISSUE [None]
  - RESPIRATORY FAILURE [None]
  - SOMNOLENCE [None]
  - THINKING ABNORMAL [None]
